FAERS Safety Report 5949815-9 (Version None)
Quarter: 2008Q4

REPORT INFORMATION
  Report Type: 
  Country: None (occurrence: None)
  Receive Date: 20081112
  Receipt Date: 20081103
  Transmission Date: 20090506
  Serious: Yes (Other)
  Sender: FDA-Public Use
  Company Number: US-ALLERGAN-0813943US

PATIENT
  Sex: Female

DRUGS (3)
  1. COMBIGAN [Suspect]
     Indication: INTRAOCULAR PRESSURE INCREASED
     Dosage: 1 GTT, BID
     Route: 047
     Dates: start: 20081001, end: 20081101
  2. ATROPINE EYE OINTMENT [Concomitant]
     Indication: HERPES ZOSTER OPHTHALMIC
     Route: 047
  3. PREDNISOLONE ACETATE [Concomitant]
     Indication: EYE INFLAMMATION
     Route: 047

REACTIONS (9)
  - ASTHENIA [None]
  - CONFUSIONAL STATE [None]
  - DEPRESSION [None]
  - DISORIENTATION [None]
  - DISTURBANCE IN ATTENTION [None]
  - DRY SKIN [None]
  - EYE PRURITUS [None]
  - FATIGUE [None]
  - PRURITUS [None]
